FAERS Safety Report 25537341 (Version 2)
Quarter: 2025Q4

REPORT INFORMATION
  Report Type: Spontaneous
  Country: PR (occurrence: PR)
  Receive Date: 20250710
  Receipt Date: 20251014
  Transmission Date: 20260117
  Serious: No
  Sender: ROCHE
  Company Number: None

PATIENT
  Age: 42 Year
  Sex: Female

DRUGS (4)
  1. MYCOPHENOLATE MOFETIL [Suspect]
     Active Substance: MYCOPHENOLATE MOFETIL
     Indication: Dermatomyositis
     Route: 048
  2. MYCOPHENOLATE MOFETIL [Suspect]
     Active Substance: MYCOPHENOLATE MOFETIL
     Route: 065
  3. IRBESARTAN [Concomitant]
     Active Substance: IRBESARTAN
     Indication: Hypertension
  4. PREDNISONE [Concomitant]
     Active Substance: PREDNISONE
     Indication: Dermatomyositis

REACTIONS (1)
  - Gastrointestinal disorder [Unknown]
